FAERS Safety Report 5352600-2 (Version None)
Quarter: 2007Q2

REPORT INFORMATION
  Report Type: 
  Country: None (occurrence: None)
  Receive Date: 20070611
  Receipt Date: 20070530
  Transmission Date: 20071010
  Serious: Yes (Other)
  Sender: FDA-Public Use
  Company Number: TR-KINGPHARMUSA00001-K200700660

PATIENT

DRUGS (1)
  1. EPINEPHRINE [Suspect]
     Indication: GASTROINTESTINAL HAEMORRHAGE
     Dosage: 16 CC 1:10 000
     Route: 050

REACTIONS (6)
  - AMAUROSIS FUGAX [None]
  - HYPERTENSIVE CRISIS [None]
  - PUPILLARY REFLEX IMPAIRED [None]
  - RETINAL EXUDATES [None]
  - RETINAL OEDEMA [None]
  - RETINAL VASCULAR DISORDER [None]
